FAERS Safety Report 7919230-7 (Version None)
Quarter: 2011Q4

REPORT INFORMATION
  Report Type: 
  Country: None (occurrence: None)
  Receive Date: 20111117
  Receipt Date: 20111114
  Transmission Date: 20120403
  Serious: Yes (Other)
  Sender: FDA-Public Use
  Company Number: US-SHIRE-ALL1-2011-03873

PATIENT
  Sex: Female
  Weight: 68.934 kg

DRUGS (4)
  1. VYVANSE [Suspect]
     Dosage: 30 MG, 1X/DAY:QD
     Route: 048
     Dates: start: 20111010
  2. LORATADINE [Concomitant]
     Indication: SEASONAL ALLERGY
     Dosage: 10 MG, 1X/DAY:QD
     Route: 048
  3. NUVARING [Concomitant]
     Indication: CONTRACEPTION
     Dosage: UNK ONCE MONTHLY
     Route: 067
     Dates: start: 20090401
  4. VYVANSE [Suspect]
     Indication: ATTENTION DEFICIT/HYPERACTIVITY DISORDER
     Dosage: 30 MG, 1X/DAY:QD
     Route: 048
     Dates: start: 20110701, end: 20110901

REACTIONS (1)
  - SYNCOPE [None]
